FAERS Safety Report 21579875 (Version 2)
Quarter: 2023Q1

REPORT INFORMATION
  Report Type: Spontaneous
  Country: JP (occurrence: JP)
  Receive Date: 20221110
  Receipt Date: 20230208
  Transmission Date: 20230418
  Serious: Yes (Death, Life-Threatening, Other)
  Sender: FDA-Public Use
  Company Number: JP-JAZZ-2022-JP-034881

PATIENT
  Age: 47 Year
  Sex: Male
  Weight: 73.6 kg

DRUGS (4)
  1. DEFITELIO [Suspect]
     Active Substance: DEFIBROTIDE SODIUM
     Indication: Venoocclusive liver disease
     Dosage: UNK
     Route: 042
     Dates: start: 20221018, end: 20221025
  2. DEFITELIO [Suspect]
     Active Substance: DEFIBROTIDE SODIUM
     Indication: Febrile neutropenia
     Dosage: 22 MG/KG
     Route: 042
     Dates: start: 20221017, end: 20221025
  3. PLATELETS [Concomitant]
     Active Substance: HUMAN PLATELET, ALLOGENIC
     Indication: Intra-abdominal haemorrhage
     Dosage: UNK
     Dates: start: 20221024
  4. FRESH FROZEN PLASMA [Concomitant]
     Active Substance: HUMAN PLASMA
     Indication: Intra-abdominal haemorrhage
     Dosage: UNK
     Dates: start: 20221024

REACTIONS (2)
  - Acute myeloid leukaemia [Fatal]
  - Intra-abdominal haemorrhage [Not Recovered/Not Resolved]

NARRATIVE: CASE EVENT DATE: 20221024
